FAERS Safety Report 9525857 (Version 1)
Quarter: 2013Q1

REPORT INFORMATION
  Report Type: Spontaneous
  Country: US (occurrence: None)
  Receive Date: 20130314
  Receipt Date: 20130314
  Transmission Date: 20140127
  Serious: Yes (Life-Threatening, Other)
  Sender: FDA-Public Use
  Company Number: 1207USA00102

PATIENT
  Age: 52 Year
  Sex: Female

DRUGS (3)
  1. IVEMEND [Suspect]
     Indication: PROPHYLAXIS OF NAUSEA AND VOMITING
     Dosage: 150 MG, UNK, INTRAVENOUS
     Route: 042
     Dates: start: 20120620
  2. ALOXI (PALONOSETRON HYDROCHLORIDE) [Concomitant]
  3. DEXAMETHASONE (DEXAMETHASONE) [Concomitant]

REACTIONS (1)
  - Anaphylactic reaction [None]
